FAERS Safety Report 8153546-7 (Version None)
Quarter: 2012Q1

REPORT INFORMATION
  Report Type: 
  Country: None (occurrence: None)
  Receive Date: 20120103
  Receipt Date: 20111029
  Transmission Date: 20120608
  Serious: No
  Sender: FDA-Public Use
  Company Number: AE-2011-002864

PATIENT
  Age: 58 Year
  Sex: Male

DRUGS (3)
  1. INCIVEK [Suspect]
     Dosage: 2250 MG (750 MG,3 IN 1 D),ORAL
     Route: 048
     Dates: start: 20110728, end: 20111020
  2. RIBAVIRIN [Concomitant]
  3. PEGINTERFERON (PEGINTERFERON ALFA-2A) [Concomitant]

REACTIONS (3)
  - PRURITUS [None]
  - INSOMNIA [None]
  - RASH [None]
